FAERS Safety Report 5152365-3 (Version None)
Quarter: 2006Q4

REPORT INFORMATION
  Report Type: 
  Country: None (occurrence: None)
  Receive Date: 20061116
  Receipt Date: 20060502
  Transmission Date: 20070319
  Serious: Yes (Death, Other)
  Sender: FDA-Public Use
  Company Number: US-ELI_LILLY_AND_COMPANY-US200605000765

PATIENT
  Age: 69 Year
  Sex: Female
  Weight: 95.238 kg

DRUGS (1)
  1. ZYPREXA [Suspect]
     Dosage: UNK, UNKNOWN

REACTIONS (4)
  - CARDIAC FAILURE [None]
  - DEATH [None]
  - DIABETES MELLITUS [None]
  - RENAL FAILURE [None]
